FAERS Safety Report 12116485 (Version 1)
Quarter: 2016Q1

REPORT INFORMATION
  Report Type: Spontaneous
  Country: US (occurrence: US)
  Receive Date: 20160225
  Receipt Date: 20160225
  Transmission Date: 20160526
  Serious: Yes (Hospitalization)
  Sender: FDA-Public Use
  Company Number: US-HLSUS-2016-US-000067

PATIENT
  Sex: Female

DRUGS (2)
  1. CLOZARIL [Suspect]
     Active Substance: CLOZAPINE
     Route: 048
     Dates: start: 2003
  2. CLOZAPINE. [Suspect]
     Active Substance: CLOZAPINE
     Dosage: 100 MG
     Route: 048

REACTIONS (4)
  - Hallucination, auditory [None]
  - Emotional disorder [Recovered/Resolved]
  - Drug dispensing error [Recovered/Resolved]
  - Mental disorder [Recovered/Resolved]
